APPROVED DRUG PRODUCT: SIMVASTATIN
Active Ingredient: SIMVASTATIN
Strength: 80MG
Dosage Form/Route: TABLET;ORAL
Application: A077752 | Product #004 | TE Code: AB
Applicant: RISING PHARMA HOLDINGS INC
Approved: Dec 20, 2006 | RLD: No | RS: No | Type: RX